FAERS Safety Report 11592247 (Version 1)
Quarter: 2015Q4

REPORT INFORMATION
  Report Type: Spontaneous
  Country: GB (occurrence: None)
  Receive Date: 20151001
  Receipt Date: 20151001
  Transmission Date: 20160304
  Serious: Yes (Other)
  Sender: FDA-Public Use
  Company Number: 2015HINSPO0793

PATIENT
  Sex: Male

DRUGS (2)
  1. ZYBAN [Concomitant]
     Active Substance: BUPROPION HYDROCHLORIDE
  2. LOSARTAN (LOSARTAN) [Suspect]
     Active Substance: LOSARTAN
     Indication: PRODUCT USED FOR UNKNOWN INDICATION

REACTIONS (1)
  - Arrhythmia [None]
